FAERS Safety Report 17720048 (Version 1)
Quarter: 2020Q2

REPORT INFORMATION
  Report Type: Report from Study
  Country: IT (occurrence: IT)
  Receive Date: 20200428
  Receipt Date: 20200428
  Transmission Date: 20200714
  Serious: Yes (Hospitalization, Other)
  Sender: FDA-Public Use
  Company Number: IT-GILEAD-2020-0461048

PATIENT
  Age: 59 Year
  Sex: Male

DRUGS (3)
  1. DARUNAVIR;RITONAVIR [Concomitant]
     Active Substance: DARUNAVIR\RITONAVIR
  2. RALTEGRAVIR. [Concomitant]
     Active Substance: RALTEGRAVIR
  3. SOFOSBUVIR W/VELPATASVIR [Suspect]
     Active Substance: SOFOSBUVIR\VELPATASVIR
     Indication: CHRONIC HEPATITIS C
     Dosage: UNK
     Route: 065

REACTIONS (1)
  - Hepatitis B reactivation [Recovered/Resolved]
